FAERS Safety Report 14922245 (Version 2)
Quarter: 2018Q2

REPORT INFORMATION
  Report Type: Report from Study
  Country: DE (occurrence: DE)
  Receive Date: 20180522
  Receipt Date: 20180607
  Transmission Date: 20180711
  Serious: Yes (Death, Hospitalization)
  Sender: FDA-Public Use
  Company Number: DE-BIOGEN-2018BI00578815

PATIENT
  Age: 73 Year
  Sex: Male

DRUGS (2)
  1. TYSABRI [Suspect]
     Active Substance: NATALIZUMAB
     Route: 042
  2. TYSABRI [Suspect]
     Active Substance: NATALIZUMAB
     Indication: PRODUCT USED FOR UNKNOWN INDICATION
     Route: 065
     Dates: start: 20100211, end: 20180201

REACTIONS (6)
  - Arteriosclerosis [Fatal]
  - Lactic acidosis [Fatal]
  - Electrolyte imbalance [Fatal]
  - Hypertension [Fatal]
  - Intestinal strangulation [Fatal]
  - Abdominal adhesions [Fatal]

NARRATIVE: CASE EVENT DATE: 20180228
